FAERS Safety Report 12816591 (Version 1)
Quarter: 2016Q4

REPORT INFORMATION
  Report Type: Spontaneous
  Country: LB (occurrence: LB)
  Receive Date: 20161005
  Receipt Date: 20161005
  Transmission Date: 20170207
  Serious: Yes (Hospitalization)
  Sender: FDA-Public Use
  Company Number: LB-PFIZER INC-2014253790

PATIENT
  Age: 70 Year
  Sex: Male

DRUGS (4)
  1. PREDNISONE. [Concomitant]
     Active Substance: PREDNISONE
     Indication: NEPHROPATHY
     Dosage: 40 MG, DAILY
  2. AMPICILLIN, SULBACTAM [Concomitant]
     Active Substance: AMPICILLIN SODIUM\SULBACTAM SODIUM
     Indication: PNEUMONIA
     Dosage: UNK
  3. CIPROFLOXACIN. [Suspect]
     Active Substance: CIPROFLOXACIN
     Indication: PNEUMONIA
     Dosage: NONADJUSTED DOSE OF 500MG EVERY 12 HOURS
  4. RITUXIMAB [Concomitant]
     Active Substance: RITUXIMAB
     Indication: NEPHROPATHY
     Dosage: 4 CYCLES

REACTIONS (3)
  - Incorrect dose administered [Recovered/Resolved]
  - Tendon rupture [Recovered/Resolved]
  - Blood creatinine increased [Unknown]
